FAERS Safety Report 23237197 (Version 1)
Quarter: 2023Q4

REPORT INFORMATION
  Report Type: Spontaneous
  Country: US (occurrence: None)
  Receive Date: 20231128
  Receipt Date: 20231128
  Transmission Date: 20240110
  Serious: Yes (Hospitalization)
  Sender: FDA-Public Use
  Company Number: None

PATIENT
  Sex: Female

DRUGS (2)
  1. STELARA [Suspect]
     Active Substance: USTEKINUMAB
     Indication: Psoriasis
     Dosage: OTHER QUANTITY : 45 MG/0.5ML ;?OTHER FREQUENCY : EVERY 12 WEEKS;?
     Route: 058
  2. STELARA [Suspect]
     Active Substance: USTEKINUMAB
     Dosage: OTHER QUANTITY : 1 SYRINGE;?OTHER FREQUENCY : EVERY 12 WEEKS;?
     Route: 058
     Dates: start: 20211130

REACTIONS (3)
  - Mammoplasty [None]
  - Psoriasis [None]
  - Therapy interrupted [None]
